FAERS Safety Report 23493842 (Version 1)
Quarter: 2024Q1

REPORT INFORMATION
  Report Type: Spontaneous
  Country: US (occurrence: US)
  Receive Date: 20240207
  Receipt Date: 20240207
  Transmission Date: 20240410
  Serious: No
  Sender: FDA-Public Use
  Company Number: US-SA-SAC20240202000624

PATIENT
  Sex: Male
  Weight: 80.6 kg

DRUGS (16)
  1. DUPIXENT [Suspect]
     Active Substance: DUPILUMAB
     Indication: Asthma
     Dosage: 200MG,QOW
     Route: 058
  2. OMEPRAZOLE [Concomitant]
     Active Substance: OMEPRAZOLE
  3. PREDNISONE [Concomitant]
     Active Substance: PREDNISONE
  4. ASPIRIN [Concomitant]
     Active Substance: ASPIRIN
  5. VENTOLIN HFA [Concomitant]
     Active Substance: ALBUTEROL SULFATE
  6. ATORVASTATIN CALCIUM [Concomitant]
     Active Substance: ATORVASTATIN CALCIUM
  7. TRELEGY ELLIPTA [Concomitant]
     Active Substance: FLUTICASONE FUROATE\UMECLIDINIUM BROMIDE\VILANTEROL TRIFENATATE
  8. SENOKOT [Concomitant]
     Active Substance: SENNOSIDES
  9. AZITHROMYCIN [Concomitant]
     Active Substance: AZITHROMYCIN
  10. HUMULIN N [Concomitant]
     Active Substance: INSULIN HUMAN
  11. LISINOPRIL [Concomitant]
     Active Substance: LISINOPRIL
  12. SPIRIVA [Concomitant]
     Active Substance: TIOTROPIUM BROMIDE MONOHYDRATE
  13. OZEMPIC [Concomitant]
     Active Substance: SEMAGLUTIDE
  14. ONDANSETRON [Concomitant]
     Active Substance: ONDANSETRON
  15. ALBUTEROL\IPRATROPIUM [Concomitant]
     Active Substance: ALBUTEROL\IPRATROPIUM
  16. JARDIANCE [Concomitant]
     Active Substance: EMPAGLIFLOZIN

REACTIONS (1)
  - Dyspnoea [Unknown]
